FAERS Safety Report 7606544-3 (Version None)
Quarter: 2011Q3

REPORT INFORMATION
  Report Type: 
  Country: None (occurrence: None)
  Receive Date: 20110713
  Receipt Date: 20110629
  Transmission Date: 20111222
  Serious: Yes (Other)
  Sender: FDA-Public Use
  Company Number: PHHY2011US38521

PATIENT
  Sex: Female

DRUGS (2)
  1. EXFORGE [Suspect]
     Dosage: 160 MG OF VALSARTAN AND 5 MG OF AMLODIPINE, ONCE DAILY
     Route: 048
  2. JANUVIA [Concomitant]

REACTIONS (11)
  - BLOOD PRESSURE INCREASED [None]
  - FACIAL PAIN [None]
  - CEREBROVASCULAR ACCIDENT [None]
  - MUSCULOSKELETAL PAIN [None]
  - VISUAL ACUITY REDUCED [None]
  - NECK PAIN [None]
  - MUSCULOSKELETAL STIFFNESS [None]
  - VISION BLURRED [None]
  - OEDEMA PERIPHERAL [None]
  - PAIN IN EXTREMITY [None]
  - PAIN [None]
